FAERS Safety Report 7388352-4 (Version None)
Quarter: 2011Q2

REPORT INFORMATION
  Report Type: 
  Country: None (occurrence: None)
  Receive Date: 20110401
  Receipt Date: 20110318
  Transmission Date: 20111010
  Serious: Yes (Disabling, Other)
  Sender: FDA-Public Use
  Company Number: PHHY2011CA22950

PATIENT
  Sex: Female

DRUGS (6)
  1. ACLASTA [Suspect]
     Indication: OSTEOPOROSIS
     Route: 042
     Dates: start: 20110311
  2. VITAMIN D [Concomitant]
  3. CALCIUM [Concomitant]
  4. D-MAUTIN [Concomitant]
  5. EZETIMIBE [Concomitant]
  6. CRESTOR [Concomitant]

REACTIONS (12)
  - PAIN IN EXTREMITY [None]
  - TREMOR [None]
  - BONE DISORDER [None]
  - ASTHENIA [None]
  - ACTIVITIES OF DAILY LIVING IMPAIRED [None]
  - BONE PAIN [None]
  - NAUSEA [None]
  - VOMITING [None]
  - CHILLS [None]
  - ARTHRALGIA [None]
  - BEDRIDDEN [None]
  - INFLUENZA LIKE ILLNESS [None]
